FAERS Safety Report 8911322 (Version 2)
Quarter: 2012Q4

REPORT INFORMATION
  Report Type: 
  Country: LB (occurrence: LB)
  Receive Date: 20121116
  Receipt Date: 20121223
  Transmission Date: 20130627
  Serious: Yes (Hospitalization)
  Sender: FDA-Public Use
  Company Number: LB-BRISTOL-MYERS SQUIBB COMPANY-17109869

PATIENT
  Age: 57 Year
  Sex: Male

DRUGS (1)
  1. APROVEL TABS [Suspect]
     Indication: HYPERTENSION
     Dosage: 1 df = 300 units NOS
     Dates: start: 201102, end: 201110

REACTIONS (1)
  - Hyperglycaemia [Recovered/Resolved]
